FAERS Safety Report 26209017 (Version 1)
Quarter: 2025Q4

REPORT INFORMATION
  Report Type: Spontaneous
  Country: US (occurrence: None)
  Receive Date: 20251229
  Receipt Date: 20251229
  Transmission Date: 20260117
  Serious: Yes (Disabling)
  Sender: FDA-CTU
  Company Number: None

PATIENT
  Age: 81 Year
  Sex: Female
  Weight: 47.63 kg

DRUGS (7)
  1. JUBBONTI [Suspect]
     Active Substance: DENOSUMAB-BBDZ
     Indication: Osteoporosis
     Dosage: EVERY 6 MONTHS; INJECTION(S) INTO THE MUSCLE
     Route: 030
     Dates: start: 20251122, end: 20251210
  2. TRAMIDOL [Concomitant]
  3. VITAMIN D [Concomitant]
     Active Substance: VITAMIN D NOS
  4. CALCIUM CITRATE [Concomitant]
     Active Substance: CALCIUM CITRATE
  5. TYLENOL [Concomitant]
     Active Substance: ACETAMINOPHEN
  6. FLEXERIL [Concomitant]
     Active Substance: CYCLOBENZAPRINE HYDROCHLORIDE
  7. VITIMIN E [Concomitant]

REACTIONS (5)
  - Myoclonus [None]
  - Loss of personal independence in daily activities [None]
  - Muscular weakness [None]
  - Musculoskeletal stiffness [None]
  - Fall [None]

NARRATIVE: CASE EVENT DATE: 20251210
